FAERS Safety Report 18048992 (Version 1)
Quarter: 2020Q3

REPORT INFORMATION
  Report Type: Spontaneous
  Country: US (occurrence: US)
  Receive Date: 20200721
  Receipt Date: 20200721
  Transmission Date: 20201103
  Serious: No
  Sender: FDA-Public Use
  Company Number: US-MYLANLABS-2020M1063110

PATIENT
  Sex: Female

DRUGS (1)
  1. FENTANYL TRANSDERMAL SYSTEM [Suspect]
     Active Substance: FENTANYL
     Indication: PRODUCT USED FOR UNKNOWN INDICATION
     Dosage: EVERY 48 HOURS
     Route: 062

REACTIONS (3)
  - Wrong technique in product usage process [Recovering/Resolving]
  - Product adhesion issue [Unknown]
  - Therapeutic product effect decreased [Recovering/Resolving]
